FAERS Safety Report 9800854 (Version 1)
Quarter: 2014Q1

REPORT INFORMATION
  Report Type: Other
  Country: GB (occurrence: GB)
  Receive Date: 20140107
  Receipt Date: 20140107
  Transmission Date: 20141002
  Serious: Yes (Other)
  Sender: FDA-Public Use
  Company Number: GB-TARO PHARMACEUTICALS U.S.A., INC-2013SUN05333

PATIENT
  Age: 77 Year
  Sex: Female
  Weight: 68.3 kg

DRUGS (5)
  1. WARFARIN [Suspect]
     Indication: PRODUCT USED FOR UNKNOWN INDICATION
     Dosage: 5 MG, QD
     Route: 065
  2. DRONEDARONE [Interacting]
     Indication: ARRHYTHMIA
     Dosage: 400 MG, BID
     Route: 048
     Dates: start: 20130911, end: 20131020
  3. DRONEDARONE [Interacting]
     Indication: ATRIAL FIBRILLATION
  4. ATORVASTATIN [Concomitant]
     Dosage: 10 MG, QD
  5. LEVOTHYROXINE [Concomitant]
     Dosage: 75 MCG, QD

REACTIONS (7)
  - Drug interaction [Unknown]
  - Dyspnoea [Recovered/Resolved]
  - Fatigue [Recovered/Resolved]
  - Dyspepsia [Recovered/Resolved]
  - Diarrhoea [Recovered/Resolved]
  - Nausea [Recovered/Resolved]
  - Epistaxis [Recovered/Resolved]
